FAERS Safety Report 6343794-0 (Version None)
Quarter: 2009Q3

REPORT INFORMATION
  Report Type: 
  Country: None (occurrence: None)
  Receive Date: 20090908
  Receipt Date: 20090831
  Transmission Date: 20100115
  Serious: Yes (Hospitalization)
  Sender: FDA-Public Use
  Company Number: B0591538A

PATIENT
  Age: 5 Year
  Sex: Male

DRUGS (3)
  1. CLAVAMOX [Suspect]
     Indication: OTITIS MEDIA
     Dosage: 2.6G TWICE PER DAY
     Route: 048
     Dates: end: 20090805
  2. ZESULAN [Concomitant]
     Route: 048
  3. ZITHROMAX [Concomitant]
     Route: 048

REACTIONS (1)
  - DRUG ERUPTION [None]
